FAERS Safety Report 24987781 (Version 2)
Quarter: 2025Q1

REPORT INFORMATION
  Report Type: Spontaneous
  Country: US (occurrence: US)
  Receive Date: 20250219
  Receipt Date: 20250313
  Transmission Date: 20250409
  Serious: No
  Sender: APOTEX
  Company Number: US-APOTEX-2025AP001981

PATIENT
  Sex: Female

DRUGS (1)
  1. OFLOXACIN [Suspect]
     Active Substance: OFLOXACIN
     Indication: Product used for unknown indication
     Dosage: UNK, QID
     Route: 047
     Dates: start: 20250204

REACTIONS (5)
  - Malaise [Unknown]
  - Product dose omission issue [Unknown]
  - Product delivery mechanism issue [Unknown]
  - Product container issue [Unknown]
  - Wrong technique in product usage process [Unknown]

NARRATIVE: CASE EVENT DATE: 20250201
